FAERS Safety Report 23323165 (Version 1)
Quarter: 2023Q4

REPORT INFORMATION
  Report Type: Spontaneous
  Country: US (occurrence: US)
  Receive Date: 20231220
  Receipt Date: 20231220
  Transmission Date: 20240110
  Serious: No
  Sender: FDA-Public Use
  Company Number: US-BRISTOL-MYERS SQUIBB COMPANY-2023-173099

PATIENT
  Age: 64 Year
  Sex: Male
  Weight: 68.3 kg

DRUGS (42)
  1. POMALYST [Suspect]
     Active Substance: POMALIDOMIDE
     Indication: Plasma cell myeloma refractory
     Route: 048
     Dates: start: 20231103
  2. DEXAMETHASONE [Suspect]
     Active Substance: DEXAMETHASONE
     Indication: Product used for unknown indication
     Dosage: FREQUENCY:  TAKE 40MG ON DAYS 1, 8, 15, AND 22 OF EACH 28-DAY CYCLE
     Route: 048
  3. HYDROMORPHONE [Suspect]
     Active Substance: HYDROMORPHONE
     Indication: Pain
  4. NEUPOGEN [Suspect]
     Active Substance: FILGRASTIM
     Indication: Product used for unknown indication
  5. VOLTAREN OSTEO [DICLOFENAC SODIUM] [Concomitant]
     Indication: Musculoskeletal pain
     Dosage: 1 % GEL, APPLY 2 G TOPICALLY EVERY 6 (SIX) HOURS AS NEEDED ; APPLY TO AFFECTED AREAS
     Route: 061
  6. ZOVIRAX [Concomitant]
     Active Substance: ACYCLOVIR
     Indication: Product used for unknown indication
     Route: 048
  7. ZYLOPRIM [Concomitant]
     Active Substance: ALLOPURINOL
     Indication: Product used for unknown indication
     Dosage: START 3 DAYS BEFORE APG-2575 TREATMENT
     Route: 048
  8. ALPHA LIPOIC ACID [Concomitant]
     Active Substance: .ALPHA.-LIPOIC ACID
     Indication: Product used for unknown indication
     Dosage: AROUND LUNCH
     Route: 048
  9. AMPHOTERICIN B [Concomitant]
     Active Substance: AMPHOTERICIN B
     Dosage: 10 MG/3 ML STERILE INHALATION, EMPTY CONTENTS OF 1 CAPSULE INTO 240 ML SALINE SINUS SOLUTION AND IRR
  10. ASPIRIN [Concomitant]
     Active Substance: ASPIRIN
     Indication: Product used for unknown indication
     Route: 048
  11. SUPER B 50 COMPLEX [Concomitant]
     Indication: Product used for unknown indication
  12. VITAMIN D3 [Concomitant]
     Active Substance: CHOLECALCIFEROL
     Indication: Product used for unknown indication
     Route: 048
  13. CHOLESTYRAMINE [Concomitant]
     Active Substance: CHOLESTYRAMINE
     Indication: Product used for unknown indication
     Dosage: PACKET
  14. FLEXERIL [Concomitant]
     Active Substance: CYCLOBENZAPRINE HYDROCHLORIDE
     Indication: Muscle spasms
     Route: 048
  15. DOCUSATE SODIUM [Concomitant]
     Active Substance: DOCUSATE SODIUM
     Indication: Constipation
     Dosage: AT BEDTIME AS NEEDED
     Route: 048
  16. SLOW IRON [Concomitant]
     Dosage: ER
     Route: 048
  17. FLONASE [Concomitant]
     Active Substance: FLUTICASONE PROPIONATE
     Indication: Product used for unknown indication
     Dosage: INTO NOSTRILS
  18. DILAUDID [Concomitant]
     Active Substance: HYDROMORPHONE HYDROCHLORIDE
     Indication: Cancer pain
     Route: 048
  19. NIZORAL [Concomitant]
     Active Substance: KETOCONAZOLE
     Indication: Product used for unknown indication
     Dosage: DIRECTED TO FACE
     Route: 061
  20. LACTOBAC [BIFIDOBACTERIUM BIFIDUM;LACTOBACILLUS RHAMNOSUS] [Concomitant]
     Dosage: 2 TSP
     Route: 048
  21. LIDODERM [Concomitant]
     Active Substance: LIDOCAINE
     Indication: Product used for unknown indication
     Dosage: PLACE 1 PATCH ON THE SKIN DAILY. APPLY TO AFFECTED AREA FOR UP TO 12 HOURS EVERY DAY
  22. EMLA [Concomitant]
     Active Substance: LIDOCAINE\PRILOCAINE
     Dosage: 2.5-2.5 %, APPLY PEA SIZED AMOUNT TO BOTOX INJECTION SITES 60 MINUTES PRIOR TO PROCEDURE
  23. ATIVAN [Concomitant]
     Active Substance: LORAZEPAM
     Indication: Anxiety
     Route: 048
  24. MAGNESIUM GLYCINATE [Concomitant]
     Active Substance: MAGNESIUM GLYCINATE
     Indication: Product used for unknown indication
     Route: 048
  25. ELOCON [Concomitant]
     Active Substance: MOMETASONE FUROATE
     Indication: Product used for unknown indication
     Dosage: ADD 1 CAPSULE TO 240 ML OF DISTILLED WATER AND SALT PACKET, IRRIGATE EACH NOSTRIL WITH 120 ML
  26. PAXLOVID [Concomitant]
     Active Substance: NIRMATRELVIR\RITONAVIR
     Indication: Product used for unknown indication
     Dosage: TAKE 300 MG NIRMATRELVIR (TWO 150 MG TABLETS) WITH 100 MG RITONAVIR (ONE 100 MG TABLET), WITH ALL TH
  27. MYCOSTATIN [Concomitant]
     Active Substance: NYSTATIN
     Dosage: TAKE 5 ML (500,000 UNITS TOTAL) BY MOUTH 4 (FOUR) TIMES A DAY. MIX MAALOX+NYSTATIN, BENADRYL, AND LI
     Route: 048
  28. PRILOSEC [Concomitant]
     Active Substance: OMEPRAZOLE MAGNESIUM
     Dosage: BEFORE BREAKFAST AND DINNER
     Route: 048
  29. ZOFRAN [Concomitant]
     Active Substance: ONDANSETRON HYDROCHLORIDE
     Indication: Nausea
     Route: 048
  30. ZOFRAN [Concomitant]
     Active Substance: ONDANSETRON HYDROCHLORIDE
     Indication: Vomiting
  31. LYRICA [Concomitant]
     Active Substance: PREGABALIN
     Indication: Product used for unknown indication
     Route: 048
  32. PROCHLORPERAZINE EDISYLATE [Concomitant]
     Active Substance: PROCHLORPERAZINE EDISYLATE
     Indication: Nausea
     Dosage: AS NEEDED
     Route: 048
  33. PROCHLORPERAZINE EDISYLATE [Concomitant]
     Active Substance: PROCHLORPERAZINE EDISYLATE
     Indication: Vomiting
  34. CRESTOR [Concomitant]
     Active Substance: ROSUVASTATIN CALCIUM
     Indication: Product used for unknown indication
     Route: 048
  35. CARAFATE [Concomitant]
     Active Substance: SUCRALFATE
     Indication: Product used for unknown indication
     Route: 048
  36. BACTRIM [Concomitant]
     Active Substance: SULFAMETHOXAZOLE\TRIMETHOPRIM
     Dosage: 400-80 MG PER TABLET
     Route: 048
  37. KENALOG [Concomitant]
     Active Substance: TRIAMCINOLONE ACETONIDE
     Indication: Rash
     Dosage: AS NEEDED
     Route: 061
  38. CALAN [Concomitant]
     Active Substance: VERAPAMIL HYDROCHLORIDE
     Indication: Product used for unknown indication
     Route: 048
  39. VFEND [Concomitant]
     Active Substance: VORICONAZOLE
     Indication: Product used for unknown indication
     Route: 048
  40. AMBIEN [Concomitant]
     Active Substance: ZOLPIDEM TARTRATE
     Indication: Insomnia
     Dosage: AT BEDTIME AS NEEDED
     Route: 048
  41. LIDOCAINE [Concomitant]
     Active Substance: LIDOCAINE
     Indication: Product used for unknown indication
     Dosage: APPLY 15 ML TO THE MOUTH OR THROAT EVERY 6 (SIX) HOURS. MIX MAALOX+NYSTATIN, BENADRYL, AND LIDOCAINE
     Route: 048
  42. OXYGEN [Concomitant]
     Active Substance: OXYGEN
     Indication: Cluster headache
     Dosage: 2 M TANKS AND 12 E TANKS OF OXYGEN WITH REGULATOR, TO SUPPLY 10 - 15 LITERS/MINUTE OF OXYGEN FOR 20

REACTIONS (6)
  - Abdominal pain [Not Recovered/Not Resolved]
  - Constipation [Recovering/Resolving]
  - Fatigue [Not Recovered/Not Resolved]
  - Rash pruritic [Recovered/Resolved]
  - Skin burning sensation [Recovered/Resolved]
  - Hypoaesthesia [Recovered/Resolved]

NARRATIVE: CASE EVENT DATE: 20231101
